FAERS Safety Report 8520134-X (Version None)
Quarter: 2012Q3

REPORT INFORMATION
  Report Type: 
  Country: None (occurrence: None)
  Receive Date: 20120719
  Receipt Date: 20120709
  Transmission Date: 20120928
  Serious: Yes (Other)
  Sender: FDA-Public Use
  Company Number: CA-JNJFOC-20120613990

PATIENT
  Sex: Male
  Weight: 107 kg

DRUGS (10)
  1. REMICADE [Suspect]
     Indication: COLITIS ULCERATIVE
     Dosage: DOSE STRENGTH: 100MG PER VIAL
     Route: 042
  2. NOVOLIN NOS [Concomitant]
     Route: 065
  3. NOVORAPID [Concomitant]
     Route: 065
  4. BENADRYL [Concomitant]
     Indication: PREMEDICATION
     Route: 042
  5. SOLU-CORTEF [Concomitant]
     Indication: PREMEDICATION
     Route: 042
  6. REMICADE [Suspect]
     Dosage: MAINTENANCE DOSE, 5TH INFUSION
     Route: 042
     Dates: start: 20120626
  7. ACETAMINOPHEN [Concomitant]
     Indication: PREMEDICATION
     Route: 048
  8. MESALAMINE [Concomitant]
     Route: 065
  9. UNSPECIFIED SUPPOSITORY [Concomitant]
     Route: 065
  10. GLYBURIDE [Concomitant]
     Route: 065

REACTIONS (12)
  - DISORIENTATION [None]
  - FLUSHING [None]
  - HYPERTENSION [None]
  - TREMOR [None]
  - URTICARIA [None]
  - PAIN IN EXTREMITY [None]
  - INFUSION RELATED REACTION [None]
  - HEART RATE INCREASED [None]
  - DYSPNOEA [None]
  - TINNITUS [None]
  - DIZZINESS [None]
  - HYPERHIDROSIS [None]
